FAERS Safety Report 6788797-7 (Version None)
Quarter: 2010Q2

REPORT INFORMATION
  Report Type: 
  Country: None (occurrence: None)
  Receive Date: 20100623
  Receipt Date: 20080519
  Transmission Date: 20101027
  Serious: No
  Sender: FDA-Public Use
  Company Number: US-PFIZER INC-2008043181

PATIENT
  Age: 19 Year

DRUGS (2)
  1. GEODON [Suspect]
  2. PROZAC [Concomitant]

REACTIONS (4)
  - DRUG SCREEN POSITIVE [None]
  - HYPERSOMNIA [None]
  - MALAISE [None]
  - TREMOR [None]
